FAERS Safety Report 6967420-2 (Version None)
Quarter: 2010Q3

REPORT INFORMATION
  Report Type: 
  Country: None (occurrence: None)
  Receive Date: 20100907
  Receipt Date: 20100830
  Transmission Date: 20110219
  Serious: Yes (Hospitalization)
  Sender: FDA-Public Use
  Company Number: CA-WYE-G06603310

PATIENT
  Sex: Female

DRUGS (3)
  1. PRISTIQ [Suspect]
     Indication: DEPRESSION
     Route: 048
  2. PRISTIQ [Suspect]
     Route: 048
     Dates: end: 20100801
  3. PRISTIQ [Suspect]
     Route: 048
     Dates: start: 20100801

REACTIONS (2)
  - PALPITATIONS [None]
  - PULMONARY EMBOLISM [None]
